FAERS Safety Report 4324955-9 (Version None)
Quarter: 2004Q1

REPORT INFORMATION
  Report Type: 
  Country: None (occurrence: None)
  Receive Date: 20040324
  Receipt Date: 20040312
  Transmission Date: 20041129
  Serious: Yes (Death)
  Sender: FDA-Public Use
  Company Number: M2004.0156

PATIENT
  Age: 54 Year
  Sex: Male
  Weight: 42 kg

DRUGS (8)
  1. RIMACTANE   CAPSULES, UNKNOWN MANUFACTURER [Suspect]
     Indication: PULMONARY TUBERCULOSIS
     Dosage: 3 TIMES DAILY
     Dates: start: 20030814, end: 20030821
  2. SODIUM CHLORIDE INJ [Concomitant]
  3. VITAMIN B COMPLEX CAP [Concomitant]
  4. MIST, TUSSIS (OPIUM TINCTURE) [Concomitant]
  5. BENZOATED [Concomitant]
  6. NITROUS ETHER SPIRIT [Concomitant]
  7. LIQUORICHE LIQUID EXTRACT [Concomitant]
  8. ANTIMONY PROTASSIUM TARTRATE) [Concomitant]

REACTIONS (3)
  - DRUG INEFFECTIVE [None]
  - HEPATITIS [None]
  - REFUSAL OF TREATMENT BY PATIENT [None]
